FAERS Safety Report 8275614-1 (Version None)
Quarter: 2012Q2

REPORT INFORMATION
  Report Type: 
  Country: None (occurrence: None)
  Receive Date: 20120412
  Receipt Date: 20120404
  Transmission Date: 20120825
  Serious: No
  Sender: FDA-Public Use
  Company Number: US-BIOGENIDEC-2012BI011745

PATIENT
  Age: 66 Year
  Sex: Female

DRUGS (1)
  1. AVONEX [Suspect]
     Indication: MULTIPLE SCLEROSIS
     Route: 030
     Dates: start: 20120308

REACTIONS (5)
  - URINARY INCONTINENCE [None]
  - FALL [None]
  - CONTUSION [None]
  - FACIAL PAIN [None]
  - INFLUENZA LIKE ILLNESS [None]
